FAERS Safety Report 21614136 (Version 1)
Quarter: 2022Q4

REPORT INFORMATION
  Report Type: Report from Study
  Country: US (occurrence: US)
  Receive Date: 20221118
  Receipt Date: 20221118
  Transmission Date: 20230113
  Serious: No
  Sender: FDA-Public Use
  Company Number: US-ABBVIE-4157580

PATIENT
  Sex: Female

DRUGS (4)
  1. HUMIRA [Suspect]
     Active Substance: ADALIMUMAB
     Indication: Psoriatic arthropathy
     Route: 058
  2. Pfizer/BioNTec [Concomitant]
     Indication: COVID-19 immunisation
     Dosage: ONE IN ONCE. FIRST DOSE
     Route: 030
     Dates: start: 20210220, end: 20210220
  3. Pfizer/BioNTec [Concomitant]
     Indication: COVID-19 immunisation
     Dosage: ONE IN ONCE. SECOND DOSE
     Route: 030
     Dates: start: 20210511, end: 20210511
  4. Pfizer/BioNTec [Concomitant]
     Indication: COVID-19 immunisation
     Dosage: ONE IN ONCE. THIRD /BOOSTER DOSE
     Route: 030
     Dates: start: 20220517, end: 20220517

REACTIONS (1)
  - Therapeutic product effect incomplete [Not Recovered/Not Resolved]
